FAERS Safety Report 14995139 (Version 1)
Quarter: 2018Q2

REPORT INFORMATION
  Report Type: Spontaneous
  Country: DE (occurrence: DE)
  Receive Date: 20180611
  Receipt Date: 20180611
  Transmission Date: 20180711
  Serious: Yes (Hospitalization)
  Sender: FDA-Public Use
  Company Number: DE-TEVA-2018-DE-904521

PATIENT
  Age: 71 Year
  Sex: Male

DRUGS (12)
  1. PEMETREXED. [Suspect]
     Active Substance: PEMETREXED
     Dosage: NK MG, NK
     Route: 065
  2. METAMIZOL [Concomitant]
     Active Substance: METAMIZOLE SODIUM
     Dosage: NK MG, REQUIREMENT
  3. AMBROXOL [Concomitant]
     Active Substance: AMBROXOL
     Dosage: NK MG, REQUIREMENT
  4. PASPERTIN [Concomitant]
     Dosage: NK MG, REQUIREMENT
  5. OPIPRAMOL [Concomitant]
     Active Substance: OPIPRAMOL
     Dosage: 1-1-1-0
  6. PAMIDRONS?URE [Suspect]
     Active Substance: PAMIDRONIC ACID
     Dosage: NK MG, NK
     Route: 065
  7. CARBOPLATIN. [Suspect]
     Active Substance: CARBOPLATIN
     Dosage: NK MG, NK
     Route: 065
  8. LAXOBERAL [Concomitant]
     Active Substance: SODIUM PICOSULFATE
     Dosage: NK MG, REQUIREMENT
  9. AMLODIPIN [Concomitant]
     Active Substance: AMLODIPINE BESYLATE
     Dosage: 0-1-0-0
  10. METOPROLOL. [Concomitant]
     Active Substance: METOPROLOL
     Dosage: 1-0-0-0
  11. PANTOPRAZOL [Concomitant]
     Active Substance: PANTOPRAZOLE SODIUM
     Dosage: 1-0-1-0
  12. PHENPROCOUMON [Concomitant]
     Active Substance: PHENPROCOUMON
     Dosage: ACCORDING TO  INR

REACTIONS (6)
  - Dizziness [Unknown]
  - Dysphonia [Unknown]
  - Decreased appetite [Unknown]
  - General physical health deterioration [Unknown]
  - Nausea [Unknown]
  - Electrolyte imbalance [Unknown]
